FAERS Safety Report 10285761 (Version 2)
Quarter: 2014Q3

REPORT INFORMATION
  Report Type: Spontaneous
  Country: ES (occurrence: ES)
  Receive Date: 20140709
  Receipt Date: 20140716
  Transmission Date: 20150326
  Serious: Yes (Death)
  Sender: FDA-Public Use
  Company Number: ES-BRISTOL-MYERS SQUIBB COMPANY-21184973

PATIENT
  Age: 56 Year
  Sex: Male

DRUGS (7)
  1. CETUXIMAB [Suspect]
     Active Substance: CETUXIMAB
     Indication: HEAD AND NECK CANCER
     Dosage: MONOTHERAPY-LOADING DOSE
     Route: 042
     Dates: start: 20110718, end: 20110718
  2. CISPLATIN. [Concomitant]
     Active Substance: CISPLATIN
     Indication: HEAD AND NECK CANCER
     Dates: start: 20110718
  3. DEXCHLORPHENIRAMINE [Concomitant]
     Active Substance: DEXCHLORPHENIRAMINE
  4. GRANISETRON [Concomitant]
     Active Substance: GRANISETRON
  5. 5-FU [Concomitant]
     Active Substance: FLUOROURACIL
     Indication: HEAD AND NECK CANCER
     Dates: start: 20110718
  6. DEXAMETHASONE. [Concomitant]
     Active Substance: DEXAMETHASONE
  7. CISPLATIN. [Concomitant]
     Active Substance: CISPLATIN
     Indication: HEAD AND NECK CANCER
     Dates: start: 20110307, end: 20110415

REACTIONS (1)
  - Pulmonary embolism [Fatal]

NARRATIVE: CASE EVENT DATE: 20110718
